FAERS Safety Report 9591628 (Version 1)
Quarter: 2013Q4

REPORT INFORMATION
  Report Type: Spontaneous
  Country: US (occurrence: US)
  Receive Date: 20131003
  Receipt Date: 20131003
  Transmission Date: 20140711
  Serious: No
  Sender: FDA-Public Use
  Company Number: US-AMGEN-USASP2012082125

PATIENT
  Sex: Female

DRUGS (6)
  1. ENBREL [Suspect]
     Indication: PSORIATIC ARTHROPATHY
     Dosage: 50 MG, 2 TIMES/WK
  2. SIMPONI [Concomitant]
     Dosage: 50 MG, UNK
  3. ATENOLOL [Concomitant]
     Dosage: 50 MG, UNK
  4. CALCIUM D                          /00944201/ [Concomitant]
     Dosage: UNK
  5. LEVOXYL [Concomitant]
     Dosage: 112 MUG, UNK
  6. BABY ASPIRIN [Concomitant]
     Dosage: 81 MG, UNK

REACTIONS (1)
  - Drug ineffective [Unknown]
